FAERS Safety Report 15385040 (Version 2)
Quarter: 2018Q3

REPORT INFORMATION
  Report Type: Spontaneous
  Country: US (occurrence: US)
  Receive Date: 20180914
  Receipt Date: 20180919
  Transmission Date: 20181010
  Serious: No
  Sender: FDA-Public Use
  Company Number: US-PFIZER INC-2018368269

PATIENT
  Age: 80 Year
  Sex: Female
  Weight: 57.6 kg

DRUGS (1)
  1. LYRICA [Suspect]
     Active Substance: PREGABALIN
     Dosage: 50 MG, 1X/DAY
     Route: 048

REACTIONS (5)
  - Nervousness [Unknown]
  - Condition aggravated [Unknown]
  - Memory impairment [Unknown]
  - Back pain [Unknown]
  - Sluggishness [Unknown]
